FAERS Safety Report 9587975 (Version 1)
Quarter: 2013Q4

REPORT INFORMATION
  Report Type: Spontaneous
  Country: NZ (occurrence: NZ)
  Receive Date: 20131003
  Receipt Date: 20131003
  Transmission Date: 20140711
  Serious: Yes (Other)
  Sender: FDA-Public Use
  Company Number: PHHY2013NZ108942

PATIENT
  Age: 33 Year
  Sex: Female

DRUGS (2)
  1. CARBAMAZEPINE [Suspect]
     Indication: CONVULSION
     Dosage: 400 MG, BID
  2. AVONEX [Suspect]
     Dosage: 30 UG, AT WEEKLY INTERVALS
     Route: 058
     Dates: start: 201105

REACTIONS (5)
  - Subacute cutaneous lupus erythematosus [Unknown]
  - Rash erythematous [Unknown]
  - Pruritus [Recovering/Resolving]
  - Pallor [Recovering/Resolving]
  - Rash generalised [Recovering/Resolving]
